FAERS Safety Report 5947836-3 (Version None)
Quarter: 2008Q4

REPORT INFORMATION
  Report Type: 
  Country: None (occurrence: None)
  Receive Date: 20081111
  Receipt Date: 20081107
  Transmission Date: 20090506
  Serious: Yes (Death, Hospitalization)
  Sender: FDA-Public Use
  Company Number: ES-BRISTOL-MYERS SQUIBB COMPANY-14395727

PATIENT
  Age: 65 Year
  Sex: Female

DRUGS (1)
  1. ORENCIA [Suspect]
     Indication: RHEUMATOID ARTHRITIS
     Dosage: RECEIVED 2-3 INFUSIONS.
     Route: 042

REACTIONS (3)
  - ACUTE RESPIRATORY FAILURE [None]
  - PULMONARY EMBOLISM [None]
  - PULMONARY FIBROSIS [None]
